FAERS Safety Report 5649245-3 (Version None)
Quarter: 2008Q1

REPORT INFORMATION
  Report Type: 
  Country: None (occurrence: None)
  Receive Date: 20080304
  Receipt Date: 20080222
  Transmission Date: 20080703
  Serious: Yes (Other)
  Sender: FDA-Public Use
  Company Number: BR-JNJFOC-20080205456

PATIENT
  Age: 12 Year
  Sex: Female

DRUGS (2)
  1. TOPAMAX [Suspect]
     Indication: CONVULSION PROPHYLAXIS
     Route: 048
  2. LAMOTRIGINE [Concomitant]
     Indication: DRUG USE FOR UNKNOWN INDICATION
     Route: 065

REACTIONS (3)
  - DIARRHOEA [None]
  - MONOPLEGIA [None]
  - VOMITING [None]
